FAERS Safety Report 7737137-5 (Version None)
Quarter: 2011Q3

REPORT INFORMATION
  Report Type: 
  Country: None (occurrence: None)
  Receive Date: 20110908
  Receipt Date: 20110830
  Transmission Date: 20111222
  Serious: Yes (Hospitalization)
  Sender: FDA-Public Use
  Company Number: FR-ROCHE-800623

PATIENT
  Sex: Female

DRUGS (2)
  1. VALIUM [Suspect]
     Dosage: FREQUENCY: ONCE
     Route: 065
     Dates: start: 20110102, end: 20110102
  2. ACETAMINOPHEN [Suspect]
     Dosage: FREQUENCY: ONCE
     Route: 048
     Dates: start: 20110102, end: 20110102

REACTIONS (1)
  - DRUG LEVEL INCREASED [None]
